FAERS Safety Report 6430029 (Version 2)
Quarter: 2020Q3

REPORT INFORMATION
  Report Type: Report from Study
  Country: JP (occurrence: JP)
  Receive Date: 20070928
  Receipt Date: 20071206
  Transmission Date: 20201104
  Serious: Yes (Death, Other)
  Sender: FDA-Public Use
  Company Number: JP-JNJFOC-20070905879

PATIENT
  Age: 63 Year
  Sex: Male

DRUGS (14)
  1. ITRIZOLE [Suspect]
     Active Substance: ITRACONAZOLE
     Route: 041
  2. MAGNESIUM OXIDE. [Concomitant]
     Active Substance: MAGNESIUM OXIDE
     Route: 048
  3. URSO 250 [Concomitant]
     Active Substance: URSODIOL
     Indication: LIVER DISORDER
     Route: 048
  4. DORIBAX [Suspect]
     Active Substance: DORIPENEM
     Route: 041
  5. BAKTAR [Concomitant]
     Active Substance: SULFAMETHOXAZOLE\TRIMETHOPRIM
     Route: 048
  6. ALLOPURINOL. [Concomitant]
     Active Substance: ALLOPURINOL
     Route: 048
  7. REBAMIPIDE [Concomitant]
     Active Substance: REBAMIPIDE
     Route: 048
  8. UNSPECIFIED INGREDIENT [Concomitant]
     Active Substance: UNSPECIFIED INGREDIENT
     Route: 058
  9. DORIBAX [Suspect]
     Active Substance: DORIPENEM
     Indication: DERMATITIS INFECTED
     Route: 041
  10. ITRIZOLE [Suspect]
     Active Substance: ITRACONAZOLE
     Indication: DERMATITIS INFECTED
     Route: 041
  11. MAXIPIME [Concomitant]
     Active Substance: CEFEPIME HYDROCHLORIDE
     Indication: SKIN INFECTION
     Route: 041
  12. DORIBAX [Suspect]
     Active Substance: DORIPENEM
     Route: 041
  13. GASTER [Concomitant]
     Active Substance: FAMOTIDINE
     Route: 048
  14. TARGOCID [Concomitant]
     Active Substance: TEICOPLANIN
     Indication: DERMATITIS INFECTED
     Route: 041

REACTIONS (2)
  - Infection [Fatal]
  - Liver disorder [Not Recovered/Not Resolved]

NARRATIVE: CASE EVENT DATE: 20070723
